FAERS Safety Report 5777046-4 (Version None)
Quarter: 2008Q2

REPORT INFORMATION
  Report Type: 
  Country: None (occurrence: None)
  Receive Date: 20080618
  Receipt Date: 20080407
  Transmission Date: 20081010
  Serious: No
  Sender: FDA-Public Use
  Company Number: US-ASTRAZENECA-2008UW07028

PATIENT
  Age: 66 Year
  Sex: Male
  Weight: 85.7 kg

DRUGS (3)
  1. SYMBICORT [Suspect]
     Indication: BRONCHITIS
     Dosage: 160/4.5 MCG 2 PUFFS BID
     Route: 055
     Dates: start: 20080301
  2. ZICOR [Concomitant]
  3. ASPIRIN [Concomitant]

REACTIONS (5)
  - BLOOD PRESSURE INCREASED [None]
  - CARDIAC DISORDER [None]
  - CHEST DISCOMFORT [None]
  - DRUG INEFFECTIVE FOR UNAPPROVED INDICATION [None]
  - DYSPNOEA [None]
